FAERS Safety Report 7157195-9 (Version None)
Quarter: 2010Q4

REPORT INFORMATION
  Report Type: 
  Country: None (occurrence: None)
  Receive Date: 20101214
  Receipt Date: 20091208
  Transmission Date: 20110411
  Serious: No
  Sender: FDA-Public Use
  Company Number: US-ASTRAZENECA-2009SE31094

PATIENT
  Age: 68 Year
  Sex: Female
  Weight: 59.4 kg

DRUGS (3)
  1. CRESTOR [Suspect]
     Route: 048
     Dates: start: 20091204
  2. NEXIUM [Concomitant]
  3. TRICOR [Concomitant]

REACTIONS (2)
  - CONSTIPATION [None]
  - URINARY TRACT INFECTION [None]
